FAERS Safety Report 8327447 (Version 5)
Quarter: 2014Q2

REPORT INFORMATION
  Report Type: Report from Study
  Country: US (occurrence: US)
  Receive Date: 20120109
  Receipt Date: 20140502
  Transmission Date: 20141212
  Serious: Yes (Hospitalization, Other)
  Sender: FDA-Public Use
  Company Number: US-ACTELION-A-US2007-14053

PATIENT
  Age: 77 Year
  Sex: Female
  Weight: 72.56 kg

DRUGS (22)
  1. TRACLEER [Suspect]
     Indication: PULMONARY HYPERTENSION
     Dosage: 125 MG, BID
     Route: 048
     Dates: start: 200509
  2. TRACLEER [Suspect]
     Dosage: 62.5 UNK, UNK
     Route: 048
     Dates: start: 200509, end: 200509
  3. REVATIO [Concomitant]
     Dosage: 20 MG, TID
  4. NASONEX [Concomitant]
  5. FUROSEMIDE [Concomitant]
     Dosage: 40 MG, UNK
  6. OMEPRAZOLE [Concomitant]
  7. ATENOLOL [Concomitant]
     Dosage: 50 MG, TID
  8. VITAMINS [Concomitant]
  9. IRON [Concomitant]
     Dosage: 65 MG, UNK
  10. TRIAMTERENE AND HYDROCHLOROTHIAZID [Concomitant]
  11. NEXIUM [Concomitant]
     Dosage: 40 MG, QD
  12. WARFARIN [Concomitant]
     Dosage: 5 MG, OD
  13. MUCINEX [Concomitant]
  14. IPRATROPIUM [Concomitant]
  15. LEVOTHYROXINE [Concomitant]
  16. DIAZEPAM [Concomitant]
     Dosage: 7.5 MG, QPM
  17. POTASSIUM [Concomitant]
     Dosage: 40 MG, BID
  18. VITAMIN C [Concomitant]
     Dosage: 500 MG, BID
  19. PURELAX [Concomitant]
  20. EQUATE NASAL [Concomitant]
     Dosage: UNK, PRN
  21. FLUTICASONE [Concomitant]
     Dosage: UNK, PRN
  22. RESTASIS [Concomitant]
     Dosage: 1 DROP, QD, EACH EYE

REACTIONS (15)
  - Confusional state [Unknown]
  - Nasal congestion [Recovering/Resolving]
  - Abdominal wall haematoma [Recovered/Resolved]
  - Pneumonia [Recovered/Resolved]
  - Pulmonary oedema [Recovered/Resolved]
  - Pyrexia [Recovered/Resolved]
  - Cough [Recovered/Resolved]
  - Headache [Not Recovered/Not Resolved]
  - Dysgeusia [Unknown]
  - Alopecia [Unknown]
  - Chest pain [Not Recovered/Not Resolved]
  - Dyspnoea [Unknown]
  - Productive cough [Unknown]
  - Insomnia [Recovered/Resolved]
  - Oxygen saturation decreased [Recovering/Resolving]
